FAERS Safety Report 25480041 (Version 1)
Quarter: 2025Q2

REPORT INFORMATION
  Report Type: Spontaneous
  Country: AU (occurrence: AU)
  Receive Date: 20250625
  Receipt Date: 20250625
  Transmission Date: 20250716
  Serious: Yes (Other)
  Sender: Alora Pharma
  Company Number: AU-OSMOTICA PHARMACEUTICALS-2025ALO02294

PATIENT
  Age: 52 Year
  Sex: Female

DRUGS (1)
  1. VENLAFAXINE [Suspect]
     Active Substance: VENLAFAXINE HYDROCHLORIDE

REACTIONS (3)
  - Glutaric acidaemia type I [Unknown]
  - Hypoglycaemia [Unknown]
  - Ketoacidosis [Unknown]
